FAERS Safety Report 7469462-X (Version None)
Quarter: 2011Q2

REPORT INFORMATION
  Report Type: 
  Country: None (occurrence: None)
  Receive Date: 20110510
  Receipt Date: 20110503
  Transmission Date: 20111010
  Serious: Yes (Other)
  Sender: FDA-Public Use
  Company Number: US-SANOFI-AVENTIS-2010SA058948

PATIENT
  Age: 74 Year
  Sex: Male

DRUGS (1)
  1. MULTAQ [Suspect]
     Indication: ATRIAL FIBRILLATION
     Route: 048
     Dates: start: 20090901, end: 20100801

REACTIONS (12)
  - PAPILLOEDEMA [None]
  - PHOTOPSIA [None]
  - COLOUR VISION TESTS ABNORMAL [None]
  - EYE PAIN [None]
  - VISUAL ACUITY REDUCED [None]
  - PUPILLARY REFLEX IMPAIRED [None]
  - BLINDNESS UNILATERAL [None]
  - VITREOUS FLOATERS [None]
  - OPTIC NEUROPATHY [None]
  - HEMICEPHALALGIA [None]
  - SCOTOMA [None]
  - VISUAL IMPAIRMENT [None]
